FAERS Safety Report 17752986 (Version 1)
Quarter: 2020Q2

REPORT INFORMATION
  Report Type: Spontaneous
  Country: US (occurrence: US)
  Receive Date: 20200506
  Receipt Date: 20200506
  Transmission Date: 20200714
  Serious: No
  Sender: FDA-Public Use
  Company Number: US-ROCHE-2387871

PATIENT
  Sex: Male

DRUGS (13)
  1. AMPICILLIN [Concomitant]
     Active Substance: AMPICILLIN
  2. LEVOTHYROXINE. [Concomitant]
     Active Substance: LEVOTHYROXINE
  3. AMOXICILLIN. [Concomitant]
     Active Substance: AMOXICILLIN
  4. CARVEDILOL. [Concomitant]
     Active Substance: CARVEDILOL
     Route: 065
  5. TRAZODONE [Concomitant]
     Active Substance: TRAZODONE HYDROCHLORIDE
  6. PRAVASTATIN. [Concomitant]
     Active Substance: PRAVASTATIN
  7. SULBACTAM [Concomitant]
     Active Substance: SULBACTAM
  8. FUROSEMIDE. [Concomitant]
     Active Substance: FUROSEMIDE
  9. ESBRIET [Suspect]
     Active Substance: PIRFENIDONE
     Indication: PULMONARY FIBROSIS
     Route: 048
     Dates: start: 20180613
  10. HYDROCHLOROTHIAZIDE. [Concomitant]
     Active Substance: HYDROCHLOROTHIAZIDE
  11. CLAVULANATE POTASSIUM [Concomitant]
     Active Substance: CLAVULANATE POTASSIUM
  12. GABAPENTIN. [Concomitant]
     Active Substance: GABAPENTIN
  13. SSD [Concomitant]
     Active Substance: SILVER SULFADIAZINE

REACTIONS (1)
  - Rash pruritic [Unknown]
